FAERS Safety Report 7076516-9 (Version None)
Quarter: 2010Q4

REPORT INFORMATION
  Report Type: 
  Country: None (occurrence: None)
  Receive Date: 20101101
  Receipt Date: 20101025
  Transmission Date: 20110411
  Serious: Yes (Hospitalization, Other)
  Sender: FDA-Public Use
  Company Number: US-ELI_LILLY_AND_COMPANY-US201002003365

PATIENT
  Sex: Female
  Weight: 56.689 kg

DRUGS (2)
  1. BYETTA [Suspect]
     Dosage: UNK, UNK
     Dates: start: 20070101
  2. GLUCOPHAGE [Concomitant]
     Indication: DIABETES MELLITUS

REACTIONS (3)
  - PANCREATIC NEOPLASM [None]
  - PANCREATITIS CHRONIC [None]
  - RECTAL CANCER STAGE II [None]
